FAERS Safety Report 20136896 (Version 1)
Quarter: 2021Q4

REPORT INFORMATION
  Report Type: Spontaneous
  Country: US (occurrence: US)
  Receive Date: 20211201
  Receipt Date: 20211201
  Transmission Date: 20220303
  Serious: Yes (Other)
  Sender: FDA-Public Use
  Company Number: US-ELI_LILLY_AND_COMPANY-US202111009316

PATIENT
  Age: 67 Year
  Sex: Female

DRUGS (8)
  1. HUMALOG [Suspect]
     Active Substance: INSULIN LISPRO
     Indication: Diabetes mellitus
     Dosage: 11 U, EACH MEAL
     Route: 058
  2. HUMALOG [Suspect]
     Active Substance: INSULIN LISPRO
     Indication: Diabetes mellitus
     Dosage: 11 U, EACH MEAL
     Route: 058
  3. HUMALOG [Suspect]
     Active Substance: INSULIN LISPRO
     Indication: Diabetes mellitus
     Dosage: 11 U, EACH MEAL
     Route: 058
  4. HUMALOG [Suspect]
     Active Substance: INSULIN LISPRO
     Dosage: 11 U, EACH MEAL
     Route: 058
  5. HUMALOG [Suspect]
     Active Substance: INSULIN LISPRO
     Dosage: 11 U, EACH MEAL
     Route: 058
  6. HUMALOG [Suspect]
     Active Substance: INSULIN LISPRO
     Dosage: 11 U, EACH MEAL
     Route: 058
  7. HUMALOG [Suspect]
     Active Substance: INSULIN LISPRO
     Dosage: 11 U, EACH MEAL
     Route: 058
  8. LANTUS [Concomitant]
     Active Substance: INSULIN GLARGINE
     Indication: Product used for unknown indication
     Dosage: 6 U, EACH MORNING

REACTIONS (5)
  - Blindness [Unknown]
  - Eye haemorrhage [Unknown]
  - Blood glucose increased [Unknown]
  - Renal failure [Unknown]
  - Product dose omission issue [Unknown]

NARRATIVE: CASE EVENT DATE: 20211119
